FAERS Safety Report 4422323-2 (Version None)
Quarter: 2004Q3

REPORT INFORMATION
  Report Type: 
  Country: None (occurrence: None)
  Receive Date: 20040810
  Receipt Date: 20040621
  Transmission Date: 20050211
  Serious: Yes (Other)
  Sender: FDA-Public Use
  Company Number: ZA-GLAXOSMITHKLINE-B0337087A

PATIENT
  Age: 18 Year
  Sex: Female
  Weight: 55 kg

DRUGS (2)
  1. ZYBAN [Suspect]
     Dosage: 150MG TWICE PER DAY
     Dates: start: 20040519, end: 20040101
  2. ALCOHOL [Concomitant]

REACTIONS (4)
  - GRAND MAL CONVULSION [None]
  - LACERATION [None]
  - MENARCHE [None]
  - POSTICTAL STATE [None]
